FAERS Safety Report 8272243-0 (Version None)
Quarter: 2012Q2

REPORT INFORMATION
  Report Type: 
  Country: None (occurrence: None)
  Receive Date: 20120410
  Receipt Date: 20120328
  Transmission Date: 20120825
  Serious: Yes (Other)
  Sender: FDA-Public Use
  Company Number: PHHY2012DE025822

PATIENT
  Sex: Female

DRUGS (1)
  1. AMLODIPINE/VALSARTAN/HYDROCHLOROTHIAZIDE [Suspect]
     Indication: HYPERTENSION
     Dosage: 1 DF, QD (160 MG VALS, 5 MG AMLO AND 12.5 MG HYDR))
     Route: 048
     Dates: start: 20100325, end: 20120315

REACTIONS (3)
  - BLISTER [None]
  - RASH PRURITIC [None]
  - DRUG INTOLERANCE [None]
